FAERS Safety Report 7488668-7 (Version None)
Quarter: 2011Q2

REPORT INFORMATION
  Report Type: 
  Country: None (occurrence: None)
  Receive Date: 20110518
  Receipt Date: 20110511
  Transmission Date: 20111010
  Serious: Yes (Other)
  Sender: FDA-Public Use
  Company Number: B0674510A

PATIENT
  Sex: Male

DRUGS (6)
  1. CIALIS [Concomitant]
  2. GLUCOBAY [Concomitant]
     Indication: PRODUCT USED FOR UNKNOWN INDICATION
     Route: 065
  3. FUROSEMIDE [Concomitant]
     Indication: PRODUCT USED FOR UNKNOWN INDICATION
     Dosage: 20MG PER DAY
     Route: 065
  4. SIMVASTATIN [Concomitant]
     Dosage: 20MG PER DAY
  5. GLUCOPHAGE [Concomitant]
     Indication: PRODUCT USED FOR UNKNOWN INDICATION
     Route: 065
  6. AVANDIA [Suspect]
     Indication: DIABETES MELLITUS
     Dosage: 8MG PER DAY
     Route: 048
     Dates: start: 20050101, end: 20070522

REACTIONS (4)
  - CARDIAC OUTPUT DECREASED [None]
  - JOINT SWELLING [None]
  - CARDIAC FAILURE CONGESTIVE [None]
  - FATIGUE [None]
